FAERS Safety Report 9537545 (Version 1)
Quarter: 2013Q3

REPORT INFORMATION
  Report Type: Spontaneous
  Country: PT (occurrence: PT)
  Receive Date: 20130919
  Receipt Date: 20130919
  Transmission Date: 20140515
  Serious: Yes (Other)
  Sender: FDA-Public Use
  Company Number: PT-CELGENEUS-130-20785-13073267

PATIENT
  Age: 70 Year
  Sex: Female

DRUGS (11)
  1. THALIDOMIDE [Suspect]
     Indication: PLASMA CELL MYELOMA
     Dosage: 100 MILLIGRAM
     Route: 048
  2. MELPHALAN [Concomitant]
     Indication: PLASMA CELL MYELOMA
     Dosage: 4 MILLIGRAM/SQ. METER
     Route: 065
  3. PREDNISONE [Concomitant]
     Indication: PLASMA CELL MYELOMA
     Dosage: 40 MILLIGRAM/SQ. METER
     Route: 065
  4. PAMIDRONATE [Concomitant]
     Indication: PRODUCT USED FOR UNKNOWN INDICATION
     Route: 041
  5. DARBEPOETIN [Concomitant]
     Indication: PRODUCT USED FOR UNKNOWN INDICATION
     Route: 058
  6. OMEPRAZOLE [Concomitant]
     Indication: PRODUCT USED FOR UNKNOWN INDICATION
     Dosage: 20 MILLIGRAM
     Route: 048
  7. IBUPROFEN [Concomitant]
     Indication: PRODUCT USED FOR UNKNOWN INDICATION
     Dosage: 600 MILLIGRAM
     Route: 048
  8. METAMIZOLE [Concomitant]
     Indication: PRODUCT USED FOR UNKNOWN INDICATION
     Dosage: 575 MILLIGRAM
     Route: 048
  9. FENTANIL [Concomitant]
     Indication: PRODUCT USED FOR UNKNOWN INDICATION
     Dosage: 72/72H
     Route: 048
  10. AAS [Concomitant]
     Indication: PRODUCT USED FOR UNKNOWN INDICATION
     Dosage: 150 MILLIGRAM
     Route: 048
  11. METOCLOPRAMIDE [Concomitant]
     Indication: PRODUCT USED FOR UNKNOWN INDICATION
     Dosage: 10 MILLIGRAM
     Route: 048

REACTIONS (2)
  - Paraparesis [Unknown]
  - Plasma cell myeloma [Unknown]
